FAERS Safety Report 5250740-X (Version None)
Quarter: 2007Q1

REPORT INFORMATION
  Report Type: 
  Country: None (occurrence: None)
  Receive Date: 20070228
  Receipt Date: 20060629
  Transmission Date: 20070707
  Serious: No
  Sender: FDA-Public Use
  Company Number: US-GLAXOSMITHKLINE-A0610782A

PATIENT
  Age: 78 Year
  Sex: Female

DRUGS (3)
  1. LAMICTAL [Suspect]
     Indication: DEPRESSION
     Dosage: 150MG TWICE PER DAY
     Route: 048
     Dates: start: 20050801
  2. LIPITOR [Concomitant]
  3. CLARITIN-D [Concomitant]

REACTIONS (1)
  - VISUAL DISTURBANCE [None]
